FAERS Safety Report 10203819 (Version 1)
Quarter: 2014Q2

REPORT INFORMATION
  Report Type: Spontaneous
  Country: US (occurrence: None)
  Receive Date: 20140523
  Receipt Date: 20140523
  Transmission Date: 20141212
  Serious: Yes (Other)
  Sender: FDA-Public Use
  Company Number: ADR-2014-00855

PATIENT
  Age: 45 Year
  Sex: Male

DRUGS (1)
  1. BACLOFEN [Suspect]

REACTIONS (8)
  - Therapy change [None]
  - Vomiting [None]
  - Disorientation [None]
  - Musculoskeletal disorder [None]
  - Abasia [None]
  - Incontinence [None]
  - Constipation [None]
  - Fatigue [None]
